FAERS Safety Report 12295264 (Version 3)
Quarter: 2016Q2

REPORT INFORMATION
  Report Type: Spontaneous
  Country: US (occurrence: US)
  Receive Date: 20160422
  Receipt Date: 20160623
  Transmission Date: 20160815
  Serious: Yes (Life-Threatening, Hospitalization, Other)
  Sender: FDA-Public Use
  Company Number: US-ACTAVIS-2016-08574

PATIENT
  Age: 8 Year
  Sex: Male

DRUGS (2)
  1. IRINOTECAN HYDROCHLORIDE (ATLLC) [Suspect]
     Active Substance: IRINOTECAN HYDROCHLORIDE
     Indication: ALVEOLAR RHABDOMYOSARCOMA
     Dosage: UNK, CYCLICAL( WITH VINCRISTINE ON DAY 1 AND ALONE ON DAY 2)
     Route: 065
  2. VINCRISTINE (UNKNOWN) [Suspect]
     Active Substance: VINCRISTINE
     Indication: ALVEOLAR RHABDOMYOSARCOMA
     Dosage: UNK, CYCLICAL( WITH IRINOTECAN ON DAY 1)
     Route: 065

REACTIONS (4)
  - Circulatory collapse [Recovered/Resolved]
  - Tumour lysis syndrome [Recovered/Resolved]
  - Acute respiratory failure [Recovered/Resolved]
  - Pulmonary oedema [Recovered/Resolved]
